FAERS Safety Report 20034134 (Version 1)
Quarter: 2021Q4

REPORT INFORMATION
  Report Type: Spontaneous
  Country: US (occurrence: US)
  Receive Date: 20211104
  Receipt Date: 20211104
  Transmission Date: 20220304
  Serious: No
  Sender: FDA-Public Use
  Company Number: US-PFIZER INC-2021523699

PATIENT
  Age: 83 Year
  Sex: Female
  Weight: 62.14 kg

DRUGS (1)
  1. XELJANZ [Suspect]
     Active Substance: TOFACITINIB CITRATE
     Indication: Rheumatoid arthritis
     Dosage: 5 MG, 1X/DAY
     Route: 048

REACTIONS (7)
  - Off label use [Unknown]
  - Cystitis [Unknown]
  - Muscular weakness [Unknown]
  - Paraesthesia [Unknown]
  - Myalgia [Unknown]
  - Pain in extremity [Unknown]
  - Muscular weakness [Unknown]
